FAERS Safety Report 5322407-0 (Version None)
Quarter: 2007Q2

REPORT INFORMATION
  Report Type: 
  Country: None (occurrence: None)
  Receive Date: 20070511
  Receipt Date: 20070430
  Transmission Date: 20071010
  Serious: Yes (Hospitalization, Other)
  Sender: FDA-Public Use
  Company Number: AU-AVENTIS-200712177EU

PATIENT
  Age: 80 Year
  Sex: Male

DRUGS (1)
  1. NITROLINGUAL [Suspect]
     Indication: DRUG USE FOR UNKNOWN INDICATION
     Route: 061

REACTIONS (3)
  - HEART RATE DECREASED [None]
  - HYPOTENSION [None]
  - MALAISE [None]
